FAERS Safety Report 25755335 (Version 1)
Quarter: 2025Q3

REPORT INFORMATION
  Report Type: Spontaneous
  Country: CN (occurrence: CN)
  Receive Date: 20250903
  Receipt Date: 20250903
  Transmission Date: 20251021
  Serious: Yes (Other)
  Sender: MYLAN
  Company Number: CN-MYLANLABS-2025M1074147

PATIENT
  Age: 59 Year
  Sex: Male

DRUGS (20)
  1. AMLODIPINE [Suspect]
     Active Substance: AMLODIPINE BESYLATE
     Indication: Hypertension
  2. AMLODIPINE [Suspect]
     Active Substance: AMLODIPINE BESYLATE
     Route: 065
  3. AMLODIPINE [Suspect]
     Active Substance: AMLODIPINE BESYLATE
     Route: 065
  4. AMLODIPINE [Suspect]
     Active Substance: AMLODIPINE BESYLATE
  5. FUROSEMIDE [Suspect]
     Active Substance: FUROSEMIDE
     Indication: Polyuria
  6. FUROSEMIDE [Suspect]
     Active Substance: FUROSEMIDE
     Indication: Oedema
     Route: 065
  7. FUROSEMIDE [Suspect]
     Active Substance: FUROSEMIDE
     Route: 065
  8. FUROSEMIDE [Suspect]
     Active Substance: FUROSEMIDE
  9. ATORVASTATIN CALCIUM [Concomitant]
     Active Substance: ATORVASTATIN CALCIUM
     Indication: Dyslipidaemia
  10. ATORVASTATIN CALCIUM [Concomitant]
     Active Substance: ATORVASTATIN CALCIUM
     Route: 065
  11. ATORVASTATIN CALCIUM [Concomitant]
     Active Substance: ATORVASTATIN CALCIUM
     Route: 065
  12. ATORVASTATIN CALCIUM [Concomitant]
     Active Substance: ATORVASTATIN CALCIUM
  13. PRALATREXATE [Concomitant]
     Active Substance: PRALATREXATE
     Indication: Lung adenocarcinoma stage III
  14. PRALATREXATE [Concomitant]
     Active Substance: PRALATREXATE
     Indication: Metastases to lymph nodes
     Route: 065
  15. PRALATREXATE [Concomitant]
     Active Substance: PRALATREXATE
     Indication: Metastases to pleura
     Route: 065
  16. PRALATREXATE [Concomitant]
     Active Substance: PRALATREXATE
  17. CATEQUENTINIB [Concomitant]
     Active Substance: CATEQUENTINIB
     Indication: Lung adenocarcinoma stage III
  18. CATEQUENTINIB [Concomitant]
     Active Substance: CATEQUENTINIB
     Indication: Metastases to lymph nodes
     Route: 065
  19. CATEQUENTINIB [Concomitant]
     Active Substance: CATEQUENTINIB
     Indication: Metastases to pleura
     Route: 065
  20. CATEQUENTINIB [Concomitant]
     Active Substance: CATEQUENTINIB

REACTIONS (1)
  - Drug ineffective [Unknown]

NARRATIVE: CASE EVENT DATE: 20240101
